FAERS Safety Report 15105116 (Version 1)
Quarter: 2018Q3

REPORT INFORMATION
  Report Type: Spontaneous
  Country: ES (occurrence: ES)
  Receive Date: 20180703
  Receipt Date: 20180703
  Transmission Date: 20181010
  Serious: Yes (Hospitalization, Other)
  Sender: FDA-Public Use
  Company Number: ES-BAXTER-2018BAX017883

PATIENT
  Age: 76 Year
  Sex: Male

DRUGS (4)
  1. LANTUS SOLOSTAR [Suspect]
     Active Substance: INSULIN GLARGINE
     Indication: TYPE 2 DIABETES MELLITUS
     Dosage: 16 IU, QD/ 16 IU /24H
     Route: 058
     Dates: end: 20180403
  2. APIDRA SOLOSTAR [Concomitant]
     Active Substance: INSULIN GLULISINE
     Indication: TYPE 2 DIABETES MELLITUS
     Dosage: UNK
     Route: 058
     Dates: end: 20180404
  3. TOUJEO [Suspect]
     Active Substance: INSULIN GLARGINE
     Indication: TYPE 2 DIABETES MELLITUS
     Dosage: 28 IU, QD/28 IU /24H
     Route: 058
     Dates: start: 20180404
  4. GLUCOSA BAXTER 5% SOLUCI?N PARA PERFUSI?N [Suspect]
     Active Substance: DEXTROSE MONOHYDRATE
     Indication: SURGERY
     Route: 065

REACTIONS (3)
  - Hyperglycaemia [Recovered/Resolved]
  - Colon neoplasm [Recovering/Resolving]
  - Metastases to liver [Recovered/Resolved]
